FAERS Safety Report 4831670-1 (Version None)
Quarter: 2005Q4

REPORT INFORMATION
  Report Type: 
  Country: None (occurrence: None)
  Receive Date: 20051116
  Receipt Date: 20051107
  Transmission Date: 20060501
  Serious: Yes (Other)
  Sender: FDA-Public Use
  Company Number: CHPA2003US02269

PATIENT
  Age: 46 Year
  Sex: Female
  Weight: 67.1 kg

DRUGS (14)
  1. EX-LAX LAXATIVE UNKNOWN FORMULA (NCH)(UNKNOWN) UNKNOWN [Suspect]
     Indication: WEIGHT CONTROL
     Dosage: ORAL
     Route: 048
     Dates: start: 19830101
  2. DULCOLAX [Suspect]
     Dosage: ORAL
     Route: 048
     Dates: start: 19830101
  3. CORRECTOL [Suspect]
     Dosage: ORAL
     Route: 048
     Dates: start: 19830101
  4. TYLENOL PM (DIPHENHYDRAMINE, PARACETAMOL) [Concomitant]
  5. CALCIUM (CALCIUM) [Concomitant]
  6. CENESTIN [Concomitant]
  7. VIVELLE [Concomitant]
  8. BENTYL [Concomitant]
  9. ZOCOR [Concomitant]
  10. ZANTAC [Concomitant]
  11. ROLAIDS [Concomitant]
  12. PHAZYME (DIASTASE, PANCREATIN, PEPSIN, SIMETICONE) [Concomitant]
  13. FLAGYL [Concomitant]
  14. ROBINUL (GLYCOPYRRONIUM BROMIDE) [Concomitant]

REACTIONS (21)
  - ABDOMINAL DISTENSION [None]
  - ABDOMINAL PAIN [None]
  - ABDOMINAL PAIN LOWER [None]
  - ABDOMINAL TENDERNESS [None]
  - BACK PAIN [None]
  - CHEST PAIN [None]
  - CONTUSION [None]
  - DIARRHOEA [None]
  - DRUG DEPENDENCE [None]
  - DYSPEPSIA [None]
  - ECONOMIC PROBLEM [None]
  - EMOTIONAL DISORDER [None]
  - FLATULENCE [None]
  - GASTRITIS [None]
  - HEADACHE [None]
  - HYPERLIPIDAEMIA [None]
  - INJURY [None]
  - IRRITABLE BOWEL SYNDROME [None]
  - MURPHY'S SIGN POSITIVE [None]
  - NAUSEA [None]
  - OVERGROWTH BACTERIAL [None]
